FAERS Safety Report 11434723 (Version 1)
Quarter: 2015Q3

REPORT INFORMATION
  Report Type: Spontaneous
  Country: JP (occurrence: JP)
  Receive Date: 20150831
  Receipt Date: 20150831
  Transmission Date: 20151125
  Serious: Yes (Other)
  Sender: FDA-Public Use
  Company Number: JP-BAYER-2015-403926

PATIENT
  Age: 83 Year
  Sex: Female

DRUGS (2)
  1. BAYASPIRIN [Suspect]
     Active Substance: ASPIRIN
     Route: 048
  2. WARFARIN [Concomitant]
     Active Substance: WARFARIN
     Route: 048

REACTIONS (3)
  - Portal venous gas [None]
  - Gastrointestinal necrosis [None]
  - Pneumatosis intestinalis [None]
